FAERS Safety Report 10360754 (Version 1)
Quarter: 2014Q3

REPORT INFORMATION
  Report Type: Spontaneous
  Country: US (occurrence: None)
  Receive Date: 20140731
  Receipt Date: 20140731
  Transmission Date: 20150326
  Serious: Yes (Other)
  Sender: FDA-Public Use
  Company Number: AUR-APL-2014-08102

PATIENT
  Age: 4 Year
  Sex: Female

DRUGS (2)
  1. ONDANSETRON [Concomitant]
     Active Substance: ONDANSETRON
  2. CEFTRIAXONE. [Suspect]
     Active Substance: CEFTRIAXONE
     Indication: HYPOVOLAEMIC SHOCK

REACTIONS (7)
  - Disseminated intravascular coagulation [None]
  - Intravascular haemolysis [None]
  - Drug specific antibody present [None]
  - Cardiovascular disorder [None]
  - Haemolytic anaemia [None]
  - Bradycardia [None]
  - Apnoea [None]
